FAERS Safety Report 17224544 (Version 1)
Quarter: 2020Q1

REPORT INFORMATION
  Report Type: Spontaneous
  Country: US (occurrence: US)
  Receive Date: 20191230
  Receipt Date: 20191230
  Transmission Date: 20200409
  Serious: No
  Sender: FDA-Public Use
  Company Number: None

PATIENT
  Age: 53 Year
  Sex: Female
  Weight: 57.15 kg

DRUGS (7)
  1. VITAMIN D [Concomitant]
     Active Substance: VITAMIN D NOS
  2. COQ10 [Concomitant]
     Active Substance: UBIDECARENONE
  3. PROBIOTIC [Concomitant]
     Active Substance: PROBIOTICS NOS
  4. MULTIVITAMIN [Concomitant]
     Active Substance: VITAMINS
  5. U-DREAM LITE 4/5 HOURS HERBAL SUPPLEMENT [Suspect]
     Active Substance: HERBALS
     Indication: INSOMNIA
     Dosage: ?          QUANTITY:1 CAPSULE(S);?
     Route: 048
     Dates: start: 20190925, end: 20191229
  6. BCOMPLEX [Concomitant]
  7. ESTRTONE HERBAL FOR MENOPAUSE [Concomitant]

REACTIONS (8)
  - Anxiety [None]
  - Crying [None]
  - Headache [None]
  - Dizziness [None]
  - Palpitations [None]
  - Chest pain [None]
  - Stress [None]
  - Feeling of despair [None]

NARRATIVE: CASE EVENT DATE: 20191229
